FAERS Safety Report 17288741 (Version 3)
Quarter: 2020Q4

REPORT INFORMATION
  Report Type: Spontaneous
  Country: US (occurrence: US)
  Receive Date: 20200120
  Receipt Date: 20201021
  Transmission Date: 20210113
  Serious: Yes (Other)
  Sender: FDA-Public Use
  Company Number: US-INSMED, INC.-US-INS-19-03602

PATIENT
  Age: 74 Year
  Sex: Female

DRUGS (1)
  1. ARIKAYCE [Suspect]
     Active Substance: AMIKACIN
     Indication: MYCOBACTERIAL INFECTION
     Route: 055
     Dates: start: 20181030

REACTIONS (4)
  - Diarrhoea [Unknown]
  - Deafness [Not Recovered/Not Resolved]
  - Asthenia [Unknown]
  - Cough [Unknown]

NARRATIVE: CASE EVENT DATE: 20191016
